FAERS Safety Report 9238671 (Version 1)
Quarter: 2013Q2

REPORT INFORMATION
  Report Type: Spontaneous
  Country: US (occurrence: US)
  Receive Date: 20130418
  Receipt Date: 20130418
  Transmission Date: 20140414
  Serious: Yes (Hospitalization)
  Sender: FDA-Public Use
  Company Number: US-BRISTOL-MYERS SQUIBB COMPANY-18788430

PATIENT
  Age: 65 Year
  Sex: Female
  Weight: 120.18 kg

DRUGS (3)
  1. BYETTA [Suspect]
     Indication: TYPE 2 DIABETES MELLITUS
     Dosage: STARTED BYETTA: 3 YEARS AGO
  2. NATEGLINIDE [Concomitant]
  3. METFORMIN [Concomitant]

REACTIONS (1)
  - Cerebrovascular accident [Unknown]
